FAERS Safety Report 13020061 (Version 1)
Quarter: 2016Q4

REPORT INFORMATION
  Report Type: Spontaneous
  Country: US (occurrence: US)
  Receive Date: 20161212
  Receipt Date: 20161212
  Transmission Date: 20170207
  Serious: Yes (Disabling)
  Sender: FDA-Public Use
  Company Number: US-ROCHE-1800202

PATIENT
  Age: 87 Year
  Sex: Female

DRUGS (11)
  1. LUCENTIS [Suspect]
     Active Substance: RANIBIZUMAB
     Indication: MACULAR DEGENERATION
  2. OMEPRAZOL [Concomitant]
     Active Substance: OMEPRAZOLE
  3. TRAZODONE [Concomitant]
     Active Substance: TRAZODONE HYDROCHLORIDE
  4. RIVASTIGMIN [Concomitant]
     Active Substance: RIVASTIGMINE
  5. TRIAMTEREN [Concomitant]
     Active Substance: TRIAMTERENE
  6. NAMENDA [Concomitant]
     Active Substance: MEMANTINE HYDROCHLORIDE
  7. LUCENTIS [Suspect]
     Active Substance: RANIBIZUMAB
     Indication: MACULAR OEDEMA
     Dosage: 7-8 WEEKS?TOTAL INJECTION RECEIVED:26
     Route: 065
     Dates: start: 20130813, end: 20160527
  8. AMLODIPINE [Concomitant]
     Active Substance: AMLODIPINE BESYLATE
  9. WARFARIN [Concomitant]
     Active Substance: WARFARIN
  10. IRBESARTAN. [Concomitant]
     Active Substance: IRBESARTAN
  11. PRAVASTATIN. [Concomitant]
     Active Substance: PRAVASTATIN

REACTIONS (1)
  - Endophthalmitis [Recovered/Resolved with Sequelae]

NARRATIVE: CASE EVENT DATE: 20160527
